APPROVED DRUG PRODUCT: AMOXICILLIN
Active Ingredient: AMOXICILLIN
Strength: 400MG/5ML
Dosage Form/Route: FOR SUSPENSION;ORAL
Application: A065113 | Product #002
Applicant: SUN PHARMACEUTICAL INDUSTRIES LTD
Approved: Nov 29, 2002 | RLD: No | RS: No | Type: DISCN